FAERS Safety Report 4971458-4 (Version None)
Quarter: 2006Q2

REPORT INFORMATION
  Report Type: 
  Country: None (occurrence: None)
  Receive Date: 20060413
  Receipt Date: 20060111
  Transmission Date: 20061013
  Serious: Yes (Hospitalization)
  Sender: FDA-Public Use
  Company Number: DE-SOLVAY-00306000157

PATIENT
  Age: 70 Year
  Sex: Female
  Weight: 60 kg

DRUGS (3)
  1. CREON [Suspect]
     Indication: ILL-DEFINED DISORDER
     Dosage: DAILY DOSE: 2 DOSAGE FORM
     Route: 048
  2. ASPIRIN [Concomitant]
     Indication: ILL-DEFINED DISORDER
     Dosage: 100 MG AS NEEDED
     Route: 065
  3. CALCIUM EFFERVESCENT POWDER [Concomitant]
     Indication: ILL-DEFINED DISORDER
     Dosage: 1200 MG AS NEEDED
     Route: 048

REACTIONS (3)
  - ABDOMINAL PAIN UPPER [None]
  - CHOLELITHIASIS [None]
  - NAUSEA [None]
